FAERS Safety Report 6028713-9 (Version None)
Quarter: 2009Q1

REPORT INFORMATION
  Report Type: 
  Country: None (occurrence: None)
  Receive Date: 20090106
  Receipt Date: 20081226
  Transmission Date: 20090719
  Serious: Yes (Death)
  Sender: FDA-Public Use
  Company Number: JP-PFIZER INC-2008061892

PATIENT
  Sex: Female
  Weight: 39 kg

DRUGS (11)
  1. SILDENAFIL CITRATE [Suspect]
     Indication: PULMONARY HYPERTENSION
     Dosage: 20 MG, 2X/DAY
     Route: 048
     Dates: start: 20080605, end: 20080716
  2. LASIX [Concomitant]
     Route: 048
     Dates: start: 20070220
  3. ALDACTONE [Concomitant]
     Route: 048
     Dates: start: 20050108
  4. ERYTHROCIN [Concomitant]
     Route: 048
     Dates: start: 20050108
  5. MUCOSAL [Concomitant]
     Route: 048
     Dates: start: 20050108
  6. MEDROL [Concomitant]
     Route: 048
     Dates: start: 20050521
  7. ALFACALCIDOL [Concomitant]
     Route: 048
     Dates: start: 20050201
  8. MUCOSTA [Concomitant]
     Route: 048
     Dates: start: 20050108
  9. LIVALO [Concomitant]
     Route: 048
     Dates: start: 20070901
  10. BERAPROST [Concomitant]
     Route: 048
     Dates: start: 20080307
  11. GASMOTIN [Concomitant]
     Route: 048

REACTIONS (1)
  - DEATH [None]
